FAERS Safety Report 16154351 (Version 2)
Quarter: 2019Q2

REPORT INFORMATION
  Report Type: Report from Study
  Country: US (occurrence: US)
  Receive Date: 20190403
  Receipt Date: 20190417
  Transmission Date: 20190711
  Serious: Yes (Hospitalization)
  Sender: FDA-Public Use
  Company Number: US-ACTELION-A-NJ2019-188538

PATIENT
  Age: 35 Year
  Sex: Male
  Weight: 94.6 kg

DRUGS (18)
  1. TRACLEER [Suspect]
     Active Substance: BOSENTAN
     Indication: PULMONARY ARTERIAL HYPERTENSION
     Dosage: 125 MG, BID
     Route: 048
     Dates: start: 20171228
  2. PREDNISONE. [Concomitant]
     Active Substance: PREDNISONE
     Dosage: 40 MG, QD
  3. METFORMIN [Concomitant]
     Active Substance: METFORMIN HYDROCHLORIDE
  4. NOVOLOG [Concomitant]
     Active Substance: INSULIN ASPART
  5. ASPIRIN. [Concomitant]
     Active Substance: ASPIRIN
     Dosage: 81 MG, QD
  6. ZANTAC [Concomitant]
     Active Substance: RANITIDINE HYDROCHLORIDE
  7. MELOXICAM. [Concomitant]
     Active Substance: MELOXICAM
  8. METOPROLOL. [Concomitant]
     Active Substance: METOPROLOL
     Dosage: 25 MG, Q12HRS
  9. LEVEMIR [Concomitant]
     Active Substance: INSULIN DETEMIR
  10. POTASSIUM CHLORIDE. [Concomitant]
     Active Substance: POTASSIUM CHLORIDE
     Dosage: 20 MEQ Q8 HOURS
  11. PULMICORT TURBUHALER [Concomitant]
     Active Substance: BUDESONIDE
  12. FUROSEMIDE. [Concomitant]
     Active Substance: FUROSEMIDE
     Dosage: 40 MG, QAM
  13. METOLAZONE. [Concomitant]
     Active Substance: METOLAZONE
     Dosage: 5 MG PO AM
  14. REVATIO [Concomitant]
     Active Substance: SILDENAFIL CITRATE
     Dosage: 20 MG Q8 HOURS
  15. MONTELUKAST [Concomitant]
     Active Substance: MONTELUKAST SODIUM
  16. OSELTAMIVIR [Concomitant]
     Active Substance: OSELTAMIVIR
  17. GABAPENTIN. [Concomitant]
     Active Substance: GABAPENTIN
  18. OXYGEN. [Concomitant]
     Active Substance: OXYGEN

REACTIONS (23)
  - Influenza [Recovering/Resolving]
  - Heart sounds abnormal [Unknown]
  - Atrial flutter [Unknown]
  - Pulmonary hypertension [Unknown]
  - Blood pressure decreased [Unknown]
  - Headache [Unknown]
  - Breath sounds abnormal [Unknown]
  - Clubbing [Unknown]
  - Pain in extremity [Unknown]
  - Conjunctival hyperaemia [Unknown]
  - Cyanosis [Unknown]
  - Atrial fibrillation [Unknown]
  - Swelling face [Unknown]
  - Ventricular pre-excitation [Unknown]
  - Pulmonary congestion [Unknown]
  - Rales [Unknown]
  - Cor pulmonale [Unknown]
  - Right ventricular failure [Unknown]
  - Hyperviscosity syndrome [Unknown]
  - Oxygen saturation decreased [Unknown]
  - Upper respiratory tract infection [Unknown]
  - Aortic aneurysm [Unknown]
  - Fluid overload [Unknown]

NARRATIVE: CASE EVENT DATE: 20190308
